FAERS Safety Report 23272573 (Version 1)
Quarter: 2023Q4

REPORT INFORMATION
  Report Type: Report from Study
  Country: BR (occurrence: BR)
  Receive Date: 20231207
  Receipt Date: 20231207
  Transmission Date: 20240110
  Serious: Yes (Life-Threatening, Other)
  Sender: FDA-Public Use
  Company Number: BR-JNJFOC-20231149808

PATIENT
  Age: 30 Year
  Sex: Female
  Weight: 70 kg

DRUGS (3)
  1. INFLIXIMAB [Suspect]
     Active Substance: INFLIXIMAB
     Indication: Colitis ulcerative
     Route: 041
     Dates: start: 20231010, end: 20231116
  2. REMICADE [Suspect]
     Active Substance: INFLIXIMAB
     Indication: Colitis ulcerative
     Dosage: LAST DRUG APPLICATION: 16-NOV-2023
     Route: 041
     Dates: start: 20231005
  3. REMICADE [Suspect]
     Active Substance: INFLIXIMAB
     Dosage: LAST DRUG APPLICATION: 16-NOV-2023
     Route: 041
     Dates: start: 20231005

REACTIONS (6)
  - Lip oedema [Recovering/Resolving]
  - Respiratory disorder [Recovering/Resolving]
  - Pruritus [Recovering/Resolving]
  - Infusion related reaction [Unknown]
  - Hypersensitivity [Unknown]
  - Off label use [Unknown]

NARRATIVE: CASE EVENT DATE: 20231116
